FAERS Safety Report 18037734 (Version 3)
Quarter: 2025Q3

REPORT INFORMATION
  Report Type: Spontaneous
  Country: CA (occurrence: CA)
  Receive Date: 20200717
  Receipt Date: 20250809
  Transmission Date: 20251021
  Serious: Yes (Other)
  Sender: ALEXION PHARMACEUTICALS
  Company Number: 2020SE88575

PATIENT
  Sex: Female

DRUGS (8)
  1. FASLODEX [Suspect]
     Active Substance: FULVESTRANT
     Indication: Breast cancer metastatic
  2. FASLODEX [Suspect]
     Active Substance: FULVESTRANT
  3. IBRANCE [Suspect]
     Active Substance: PALBOCICLIB
     Indication: Breast cancer metastatic
  4. TAMOXIFEN CITRATE [Suspect]
     Active Substance: TAMOXIFEN CITRATE
     Indication: Breast cancer metastatic
  5. AFINITOR [Suspect]
     Active Substance: EVEROLIMUS
     Indication: Breast cancer metastatic
     Route: 065
  6. EXEMESTANE [Suspect]
     Active Substance: EXEMESTANE
     Indication: Breast cancer metastatic
     Route: 065
  7. LETROZOLE [Suspect]
     Active Substance: LETROZOLE
     Indication: Breast cancer metastatic
     Route: 065
  8. CAPECITABINE [Suspect]
     Active Substance: CAPECITABINE
     Indication: Breast cancer metastatic
     Route: 065

REACTIONS (3)
  - Neoplasm progression [Unknown]
  - Diarrhoea [Unknown]
  - Myalgia [Unknown]
